FAERS Safety Report 5073693-6 (Version None)
Quarter: 2006Q3

REPORT INFORMATION
  Report Type: 
  Country: None (occurrence: None)
  Receive Date: 20060808
  Receipt Date: 20050316
  Transmission Date: 20061208
  Serious: No
  Sender: FDA-Public Use
  Company Number: US-AMGEN-KDL122278

PATIENT
  Age: 70 Year
  Sex: Female
  Weight: 71.7 kg

DRUGS (1)
  1. PROCRIT [Suspect]
     Indication: PREOPERATIVE CARE
     Dates: start: 20040901, end: 20040901

REACTIONS (3)
  - ASTHENIA [None]
  - FATIGUE [None]
  - WEIGHT DECREASED [None]
